FAERS Safety Report 4396225-4 (Version None)
Quarter: 2004Q3

REPORT INFORMATION
  Report Type: 
  Country: None (occurrence: None)
  Receive Date: 20040706
  Receipt Date: 20040624
  Transmission Date: 20050211
  Serious: Yes (Death)
  Sender: FDA-Public Use
  Company Number: B0336964A

PATIENT
  Age: 7 Year
  Sex: Male

DRUGS (4)
  1. MYLERAN [Suspect]
     Indication: BONE MARROW CONDITIONING REGIMEN
     Dosage: .8 MG KG/ SEE DOSAGE TEXT, ORAL
     Route: 048
  2. CYCLOPHOSPHAMIDE [Concomitant]
  3. CYCLOSPORINE [Concomitant]
  4. METHOTREXATE [Concomitant]

REACTIONS (7)
  - BONE MARROW TRANSPLANT [None]
  - GRAFT VERSUS HOST DISEASE [None]
  - HEPATOTOXICITY [None]
  - MUCOSAL INFLAMMATION [None]
  - NAUSEA [None]
  - RASH [None]
  - VOMITING [None]
